FAERS Safety Report 8069536-9 (Version None)
Quarter: 2012Q1

REPORT INFORMATION
  Report Type: 
  Country: None (occurrence: None)
  Receive Date: 20120119
  Receipt Date: 20120103
  Transmission Date: 20120608
  Serious: Yes (Other)
  Sender: FDA-Public Use
  Company Number: FK201200076

PATIENT
  Age: 54 Year
  Sex: Male

DRUGS (1)
  1. IFOSFAMIDE [Suspect]
     Indication: SARCOMA

REACTIONS (7)
  - MYOCLONUS [None]
  - ENCEPHALOPATHY [None]
  - TREMOR [None]
  - LIPOSARCOMA [None]
  - B-CELL LYMPHOMA [None]
  - T-CELL LYMPHOMA [None]
  - MANTLE CELL LYMPHOMA [None]
